FAERS Safety Report 5494775-0 (Version None)
Quarter: 2007Q4

REPORT INFORMATION
  Report Type: 
  Country: None (occurrence: None)
  Receive Date: 20071024
  Receipt Date: 20071019
  Transmission Date: 20080405
  Serious: Yes (Other)
  Sender: FDA-Public Use
  Company Number: US-BRISTOL-MYERS SQUIBB COMPANY-13949102

PATIENT
  Sex: Female

DRUGS (2)
  1. SUSTIVA [Suspect]
  2. COMBIVIR [Suspect]
     Dosage: PATIENT RECEIVED COMBIVIR TABLET FOR A PERIOD OF 8 YEARS.

REACTIONS (1)
  - TYPE 2 DIABETES MELLITUS [None]
